FAERS Safety Report 6171933-3 (Version None)
Quarter: 2009Q2

REPORT INFORMATION
  Report Type: 
  Country: None (occurrence: None)
  Receive Date: 20090429
  Receipt Date: 20090421
  Transmission Date: 20091009
  Serious: Yes (Death, Hospitalization, Other)
  Sender: FDA-Public Use
  Company Number: US-ELI_LILLY_AND_COMPANY-US200902006735

PATIENT
  Sex: Male
  Weight: 90 kg

DRUGS (17)
  1. BYETTA [Suspect]
     Indication: TYPE 2 DIABETES MELLITUS
     Dosage: 5 UG, 2/D
     Route: 058
     Dates: start: 20070220, end: 20070327
  2. BYETTA [Suspect]
     Dosage: 10 UG, 2/D
     Route: 058
     Dates: start: 20070327, end: 20070417
  3. DEMADEX [Concomitant]
     Indication: CARDIAC FAILURE CONGESTIVE
     Dosage: 20 MG, 2/D
     Route: 048
  4. GLUCOPHAGE [Concomitant]
     Indication: TYPE 2 DIABETES MELLITUS
     Dosage: 1000 MG, 2/D
     Route: 048
  5. ASPIRIN [Concomitant]
     Dosage: 81 MG, DAILY (1/D)
     Route: 048
  6. IMDUR [Concomitant]
     Dosage: 60 MG, DAILY (1/D)
     Route: 048
  7. K-DUR [Concomitant]
     Dosage: 10 MEQ, DAILY (1/D)
     Route: 048
  8. LISINOPRIL [Concomitant]
     Indication: ESSENTIAL HYPERTENSION
     Dosage: 40 MG, DAILY (1/D)
  9. NORVASC [Concomitant]
     Indication: ESSENTIAL HYPERTENSION
     Dosage: 10 MG, DAILY (1/D)
     Route: 048
  10. AVAPRO [Concomitant]
     Dosage: 300 MG, DAILY (1/D)
     Route: 048
  11. DOXAZOSIN MESYLATE [Concomitant]
     Indication: ESSENTIAL HYPERTENSION
     Dosage: 1 MG, DAILY (1/D)
     Route: 048
     Dates: end: 20070220
  12. DOXAZOSIN MESYLATE [Concomitant]
     Dosage: 2 MG, DAILY (1/D)
     Route: 048
     Dates: start: 20070220, end: 20070327
  13. DOXAZOSIN MESYLATE [Concomitant]
     Dosage: 3 MG, DAILY (1/D)
     Route: 048
     Dates: start: 20070327
  14. TRICOR [Concomitant]
     Indication: DYSLIPIDAEMIA
     Dosage: 48 MG, DAILY (1/D)
     Route: 048
     Dates: start: 20061201
  15. LANTUS [Concomitant]
     Indication: TYPE 2 DIABETES MELLITUS
     Dosage: UNK, AS NEEDED
  16. HUMALOG [Concomitant]
     Indication: TYPE 2 DIABETES MELLITUS
     Dosage: UNK, AS NEEDED
  17. LIPITOR [Concomitant]
     Dates: end: 20061201

REACTIONS (9)
  - CLOSTRIDIUM DIFFICILE COLITIS [None]
  - ESCHERICHIA INFECTION [None]
  - HEPATIC FAILURE [None]
  - LIVER DISORDER [None]
  - POLYP COLORECTAL [None]
  - RENAL FAILURE ACUTE [None]
  - RENAL TUBULAR NECROSIS [None]
  - URINARY TRACT INFECTION [None]
  - WEIGHT DECREASED [None]
